FAERS Safety Report 8144006-8 (Version None)
Quarter: 2012Q1

REPORT INFORMATION
  Report Type: 
  Country: None (occurrence: None)
  Receive Date: 20120217
  Receipt Date: 20120217
  Transmission Date: 20120608
  Serious: Yes (Life-Threatening)
  Sender: FDA-Public Use
  Company Number: None

PATIENT
  Sex: Female
  Weight: 68.038 kg

DRUGS (1)
  1. TROPICAMIDE [Suspect]
     Indication: OPHTHALMOLOGICAL EXAMINATION
     Dosage: DROP?
     Dates: start: 20120215, end: 20120215

REACTIONS (6)
  - HEART RATE INCREASED [None]
  - BLOOD PRESSURE INCREASED [None]
  - FEELING HOT [None]
  - RASH [None]
  - TREMOR [None]
  - DYSPNOEA [None]
